FAERS Safety Report 25140868 (Version 1)
Quarter: 2025Q1

REPORT INFORMATION
  Report Type: Spontaneous
  Country: CN (occurrence: CN)
  Receive Date: 20250331
  Receipt Date: 20250331
  Transmission Date: 20250409
  Serious: Yes (Hospitalization, Disabling, Other)
  Sender: BRACCO
  Company Number: CN-BRACCO-2025CN01848

PATIENT
  Age: 87 Year
  Sex: Male

DRUGS (1)
  1. IOMEPROL [Suspect]
     Active Substance: IOMEPROL
     Indication: Angiogram
     Route: 042
     Dates: start: 20250310, end: 20250310

REACTIONS (5)
  - Renal impairment [Recovering/Resolving]
  - Leukocytosis [Recovering/Resolving]
  - Haemolytic anaemia [Recovering/Resolving]
  - Haematuria [Recovering/Resolving]
  - Dyspnoea [Recovering/Resolving]

NARRATIVE: CASE EVENT DATE: 20250310
